FAERS Safety Report 12154219 (Version 1)
Quarter: 2016Q1

REPORT INFORMATION
  Report Type: Spontaneous
  Country: AU (occurrence: AU)
  Receive Date: 20160307
  Receipt Date: 20160307
  Transmission Date: 20160526
  Serious: Yes (Death)
  Sender: FDA-Public Use
  Company Number: AU-009507513-1603AUS001750

PATIENT
  Age: 14 Year
  Sex: Male
  Weight: 50 kg

DRUGS (1)
  1. ROCURONIUM BROMIDE. [Suspect]
     Active Substance: ROCURONIUM BROMIDE
     Dosage: 30 MG, ONCE
     Route: 040
     Dates: start: 20141121, end: 20141121

REACTIONS (2)
  - Respiratory failure [Fatal]
  - Bronchospasm [Fatal]

NARRATIVE: CASE EVENT DATE: 20141121
